FAERS Safety Report 18379127 (Version 1)
Quarter: 2020Q4

REPORT INFORMATION
  Report Type: Spontaneous
  Country: US (occurrence: US)
  Receive Date: 20201013
  Receipt Date: 20201013
  Transmission Date: 20210114
  Serious: Yes (Hospitalization, Other)
  Sender: FDA-Public Use
  Company Number: US-PURDUE-USA-2020-0170379

PATIENT
  Sex: Female

DRUGS (2)
  1. OXYCODONE/ ACETAMINOPHEN TABLETS [Suspect]
     Active Substance: ACETAMINOPHEN\OXYCODONE HYDROCHLORIDE
     Indication: PRODUCT USED FOR UNKNOWN INDICATION
     Dosage: UNK
     Route: 048
     Dates: start: 2003
  2. PERCOCET                           /00446701/ [Suspect]
     Active Substance: ACETAMINOPHEN\OXYCODONE HYDROCHLORIDE\OXYCODONE TEREPHTHALATE
     Indication: PAIN
     Dosage: UNK
     Route: 065
     Dates: start: 2003

REACTIONS (16)
  - Depressed mood [Unknown]
  - Drug dependence [Unknown]
  - Panic attack [Unknown]
  - Intervertebral disc protrusion [Unknown]
  - Arthralgia [Unknown]
  - Depression [Unknown]
  - Apathy [Unknown]
  - Pain [Unknown]
  - Sciatica [Unknown]
  - Urinary incontinence [Unknown]
  - Spinal operation [Unknown]
  - Anxiety [Unknown]
  - Stress [Unknown]
  - Anal incontinence [Unknown]
  - Learning disability [Unknown]
  - Dysstasia [Unknown]
